FAERS Safety Report 16268262 (Version 1)
Quarter: 2019Q2

REPORT INFORMATION
  Report Type: Spontaneous
  Country: SE (occurrence: SE)
  Receive Date: 20190503
  Receipt Date: 20190503
  Transmission Date: 20190711
  Serious: Yes (Hospitalization)
  Sender: FDA-Public Use
  Company Number: SE-TEVA-2019-SE-1044770

PATIENT
  Age: 29 Year
  Sex: Male

DRUGS (1)
  1. DIMOR [Suspect]
     Active Substance: LOPERAMIDE
     Dosage: ^INCREASING DOSE DIMOR IN A MONTH ^,  ^UP TO 10-15 PACKETS (160-240 TABL) ^,  ^LAST TIME ^
     Route: 048
     Dates: start: 201101

REACTIONS (7)
  - Intentional overdose [Unknown]
  - Bundle branch block [Recovered/Resolved]
  - Ventricular extrasystoles [Recovered/Resolved]
  - Intentional self-injury [Unknown]
  - Pallor [Unknown]
  - Resting tremor [Unknown]
  - Electrocardiogram QRS complex prolonged [Recovered/Resolved]

NARRATIVE: CASE EVENT DATE: 201101
